FAERS Safety Report 19691798 (Version 3)
Quarter: 2021Q3

REPORT INFORMATION
  Report Type: Spontaneous
  Country: US (occurrence: US)
  Receive Date: 20210812
  Receipt Date: 20210923
  Transmission Date: 20211014
  Serious: Yes (Other)
  Sender: FDA-Public Use
  Company Number: US-BAYER-2021-189928

PATIENT
  Age: 26 Year
  Sex: Male

DRUGS (3)
  1. KOVALTRY [Suspect]
     Active Substance: ANTIHEMOPHILIC FACTOR, HUMAN RECOMBINANT
     Dosage: UNK (DOUBLE DOSE TO TREAT THE BLEED)
     Dates: start: 20210715, end: 20210715
  2. KOVALTRY [Suspect]
     Active Substance: ANTIHEMOPHILIC FACTOR, HUMAN RECOMBINANT
     Dosage: 3000 U, UNK
  3. KOVALTRY [Suspect]
     Active Substance: ANTIHEMOPHILIC FACTOR, HUMAN RECOMBINANT
     Dosage: USED A DOUBLE DOSE (~6000 UNITS)
     Dates: start: 20210829, end: 20210829

REACTIONS (2)
  - Joint injury [None]
  - Haemarthrosis [None]

NARRATIVE: CASE EVENT DATE: 20210715
